FAERS Safety Report 10101847 (Version 4)
Quarter: 2014Q2

REPORT INFORMATION
  Report Type: Spontaneous
  Country: US (occurrence: US)
  Receive Date: 20140424
  Receipt Date: 20140523
  Transmission Date: 20141212
  Serious: Yes (Hospitalization, Other)
  Sender: FDA-Public Use
  Company Number: US-BAXTER-2014BAX019801

PATIENT
  Sex: Male
  Weight: 92.5 kg

DRUGS (2)
  1. DIANEAL LOW CALCIUM [Suspect]
     Indication: RENAL FAILURE CHRONIC
     Route: 033
     Dates: start: 2013, end: 20140508
  2. DIANEAL LOW CALCIUM (ULTRABAG) [Suspect]
     Indication: RENAL FAILURE CHRONIC
     Route: 033
     Dates: start: 2013, end: 20140508

REACTIONS (4)
  - Transient ischaemic attack [Recovering/Resolving]
  - Weight decreased [Not Recovered/Not Resolved]
  - Cholelithiasis [Recovering/Resolving]
  - Cholecystitis infective [Not Recovered/Not Resolved]
